FAERS Safety Report 20012237 (Version 2)
Quarter: 2021Q4

REPORT INFORMATION
  Report Type: Spontaneous
  Country: US (occurrence: US)
  Receive Date: 20211029
  Receipt Date: 20211129
  Transmission Date: 20220304
  Serious: No
  Sender: FDA-Public Use
  Company Number: US-ALXN-A202111767

PATIENT
  Age: 15 Year
  Sex: Female
  Weight: 54.6 kg

DRUGS (14)
  1. SOLIRIS [Suspect]
     Active Substance: ECULIZUMAB
     Indication: Lupus nephritis
     Dosage: 1200 MG, QIW
     Route: 042
     Dates: start: 20210716
  2. SOLIRIS [Suspect]
     Active Substance: ECULIZUMAB
     Indication: Atypical haemolytic uraemic syndrome
     Dosage: UNK, QW
     Route: 065
  3. NORVASC [Concomitant]
     Active Substance: AMLODIPINE BESYLATE
     Indication: Blood pressure management
     Dosage: 5 MG, 2 TABLETS EACH 8 AM AND 8 PM
     Route: 048
  4. TENORMIN [Concomitant]
     Active Substance: ATENOLOL
     Indication: Hypertension
     Dosage: 100 MG, 1 TABLET
     Route: 048
  5. TENORMIN [Concomitant]
     Active Substance: ATENOLOL
     Indication: Angina pectoris
  6. PREDNISONE [Concomitant]
     Active Substance: PREDNISONE
     Indication: Inflammation
     Dosage: 10 MG, 3 TABLETS EACH 8 AM AND 8 PM
     Route: 048
  7. FUROSEMIDE [Concomitant]
     Active Substance: FUROSEMIDE
     Indication: Fluid retention
     Dosage: 40 MG, 1 EACH TABLET 8 AM AND 8PM
     Route: 048
  8. PENICILLIN V POTASSIUM [Concomitant]
     Active Substance: PENICILLIN V POTASSIUM
     Indication: Prophylaxis
     Dosage: 250 MG, EACH TABLET AT 8 AM AND A8 PM
     Route: 048
  9. SEVELAMER CARBONATE [Concomitant]
     Active Substance: SEVELAMER CARBONATE
     Indication: Blood phosphorus increased
     Dosage: 800 MG, 2 TABLETS (1600 MG) WITH MEALS, 1 TABLET (800MG)WITH SNACKS
     Route: 048
  10. ESOMEPRAZOLE MAGNESIUM [Concomitant]
     Active Substance: ESOMEPRAZOLE MAGNESIUM
     Indication: Prophylaxis
     Dosage: 40 MG, 1 TABLET AT 8 AM
     Route: 048
  11. MIRALAX [Concomitant]
     Active Substance: POLYETHYLENE GLYCOL 3350
     Indication: Constipation
     Dosage: 17 G, UNK
     Route: 048
  12. VITAMIN D3 [Concomitant]
     Active Substance: CHOLECALCIFEROL
     Indication: Supplementation therapy
     Dosage: 5000 UT, UNK
     Route: 048
  13. CATAPRES [Concomitant]
     Active Substance: CLONIDINE HYDROCHLORIDE
     Indication: Insomnia
     Dosage: 0.1 MG, 1 TABLET IN 9 PM
     Route: 048
  14. TUMS                               /07357001/ [Concomitant]
     Indication: Dyspepsia
     Dosage: 500 MG, 200 ABLETS BY MOUTH AS NEEDED FOR LEG CRAMPS
     Route: 065

REACTIONS (3)
  - Proteinuria [Recovering/Resolving]
  - Blood lactate dehydrogenase increased [Recovering/Resolving]
  - Off label use [Unknown]

NARRATIVE: CASE EVENT DATE: 20210727
